FAERS Safety Report 8432632-8 (Version None)
Quarter: 2012Q2

REPORT INFORMATION
  Report Type: 
  Country: None (occurrence: None)
  Receive Date: 20120613
  Receipt Date: 20120607
  Transmission Date: 20120825
  Serious: Yes (Hospitalization)
  Sender: FDA-Public Use
  Company Number: US-AMGEN-USASP2012035789

PATIENT
  Age: 43 Year
  Sex: Female

DRUGS (1)
  1. ENBREL [Suspect]
     Indication: RHEUMATOID ARTHRITIS
     Dosage: 50 MG, QWK
     Dates: start: 20010101, end: 20120505

REACTIONS (5)
  - UNEVALUABLE EVENT [None]
  - FOOT OPERATION [None]
  - JOINT DESTRUCTION [None]
  - RHEUMATOID ARTHRITIS [None]
  - CANDIDIASIS [None]
